FAERS Safety Report 23078977 (Version 4)
Quarter: 2024Q3

REPORT INFORMATION
  Report Type: Report from Study
  Country: CN (occurrence: CN)
  Receive Date: 20231018
  Receipt Date: 20240712
  Transmission Date: 20241017
  Serious: Yes (Hospitalization)
  Sender: PFIZER
  Company Number: CN-PFIZER INC-PV202300167291

PATIENT
  Age: 49 Year
  Sex: Female
  Weight: 60 kg

DRUGS (5)
  1. CYTARABINE [Suspect]
     Active Substance: CYTARABINE
     Indication: Acute myeloid leukaemia
     Dosage: 1600 MG, 1X/DAY
     Route: 041
     Dates: start: 20230905, end: 20230909
  2. INVESTIGATIONAL PRODUCT [Suspect]
     Active Substance: INVESTIGATIONAL PRODUCT
     Indication: Acute myeloid leukaemia
     Dosage: UNK, 1X/DAY
     Route: 041
     Dates: start: 20230904, end: 20230904
  3. INVESTIGATIONAL PRODUCT [Suspect]
     Active Substance: INVESTIGATIONAL PRODUCT
     Dosage: UNK, 2X/DAY (Q12H)
     Route: 041
     Dates: start: 20230905, end: 20230911
  4. ETOPOSIDE [Suspect]
     Active Substance: ETOPOSIDE
     Indication: Acute myeloid leukaemia
     Dosage: 160 MG (0.1/5 GRAM PER MILLILITRE), 1X/DAY
     Route: 041
     Dates: start: 20230905, end: 20230907
  5. MITOXANTRONE [Suspect]
     Active Substance: MITOXANTRONE HYDROCHLORIDE
     Indication: Acute myeloid leukaemia
     Dosage: 9.6 MG (25/12.5 MILLIGRAM PER MILLILITRE), 1X/DAY
     Route: 041
     Dates: start: 20230905, end: 20230909

REACTIONS (1)
  - Enterococcal sepsis [Recovered/Resolved]

NARRATIVE: CASE EVENT DATE: 20230923
